FAERS Safety Report 11653151 (Version 2)
Quarter: 2015Q4

REPORT INFORMATION
  Report Type: Spontaneous
  Country: US (occurrence: US)
  Receive Date: 20151022
  Receipt Date: 20151120
  Transmission Date: 20160304
  Serious: Yes (Life-Threatening, Hospitalization)
  Sender: FDA-Public Use
  Company Number: US-TARO-2015TAR00971

PATIENT
  Age: 78 Year
  Sex: Male
  Weight: 86.17 kg

DRUGS (14)
  1. METFORMIN HCL ER [Concomitant]
     Active Substance: METFORMIN HYDROCHLORIDE
     Dosage: 500 MG, 1X/DAY
  2. WARFARIN SODIUM TABLETS USP 5MG [Suspect]
     Active Substance: WARFARIN SODIUM
     Dosage: 2.5 MG, 4X/WEEK
     Route: 048
     Dates: start: 201502
  3. ULTRA COQ10 [Concomitant]
     Dosage: 100 MG, 1X/DAY
  4. DIGITEK [Concomitant]
     Active Substance: DIGOXIN
     Dosage: 250 ?G, 1X/DAY
     Dates: start: 2006
  5. WARFARIN SODIUM TABLETS USP 5MG [Suspect]
     Active Substance: WARFARIN SODIUM
     Dosage: 5 MG, 4X/WEEK
     Route: 048
  6. WARFARIN SODIUM TABLETS USP 5MG [Suspect]
     Active Substance: WARFARIN SODIUM
     Dosage: 7.5 MG, 1X/DAY
     Route: 048
     Dates: end: 201502
  7. WARFARIN SODIUM TABLETS USP 5MG [Suspect]
     Active Substance: WARFARIN SODIUM
     Dosage: 2.5 MG, 4X/WEEK
     Route: 048
     Dates: start: 2006
  8. WARFARIN SODIUM TABLETS USP 5MG [Suspect]
     Active Substance: WARFARIN SODIUM
     Dosage: 5 MG, 3X/WEEK
     Route: 048
     Dates: start: 201502
  9. TAMSULOSIN HCL [Concomitant]
     Active Substance: TAMSULOSIN
     Dosage: 0.4 MG, 1X/DAY
  10. UNKNOWN OTHER PRODUCTS [Concomitant]
  11. WARFARIN SODIUM TABLETS USP 5MG [Suspect]
     Active Substance: WARFARIN SODIUM
     Indication: ATRIAL FIBRILLATION
     Dosage: 5 MG, 3X/WEEK
     Route: 048
     Dates: start: 2006
  12. AUGMENTIN [Concomitant]
     Active Substance: AMOXICILLIN\CLAVULANATE POTASSIUM
     Dosage: 1 DOSAGE UNITS, 2X/DAY
  13. LOSARTAN/HCTZ [Concomitant]
     Active Substance: HYDROCHLOROTHIAZIDE\LOSARTAN
     Dosage: 1 TABLETS, 1X/DAY
  14. WARFARIN SODIUM TABLETS USP 5MG [Suspect]
     Active Substance: WARFARIN SODIUM
     Dosage: 2.5 MG, 3X/WEEK
     Route: 048

REACTIONS (10)
  - Haemarthrosis [Unknown]
  - Accidental overdose [Recovered/Resolved]
  - Enteritis [Unknown]
  - International normalised ratio increased [Recovered/Resolved]
  - Toxicity to various agents [Recovered/Resolved]
  - Haematochezia [Unknown]
  - Gait disturbance [Unknown]
  - Internal haemorrhage [Unknown]
  - Constipation [Unknown]
  - Bloody discharge [Unknown]

NARRATIVE: CASE EVENT DATE: 201502
